FAERS Safety Report 9700159 (Version 1)
Quarter: 2013Q4

REPORT INFORMATION
  Report Type: Spontaneous
  Country: US (occurrence: US)
  Receive Date: 20131121
  Receipt Date: 20131121
  Transmission Date: 20140711
  Serious: Yes (Other)
  Sender: FDA-Public Use
  Company Number: US-SHIRE-ALL1-2013-07764

PATIENT
  Age: 28 Year
  Sex: Male

DRUGS (3)
  1. ADDERALL XR [Suspect]
     Indication: DISTURBANCE IN ATTENTION
     Dosage: 30 MG, 2X/DAY:BID
     Route: 048
     Dates: end: 20131104
  2. ADDERALL XR [Suspect]
     Dosage: 25 MG, 2X/DAY:BID
     Route: 048
     Dates: start: 20131105
  3. XANAX [Concomitant]
     Indication: PRODUCT USED FOR UNKNOWN INDICATION
     Dosage: UNK, UNKNOWN
     Route: 065

REACTIONS (5)
  - Hallucinations, mixed [Unknown]
  - Impulsive behaviour [Unknown]
  - Legal problem [Unknown]
  - Impaired driving ability [Unknown]
  - Prescribed overdose [Not Recovered/Not Resolved]
